FAERS Safety Report 7611232-3 (Version None)
Quarter: 2011Q3

REPORT INFORMATION
  Report Type: 
  Country: None (occurrence: None)
  Receive Date: 20110715
  Receipt Date: 20110706
  Transmission Date: 20111222
  Serious: Yes (Disabling)
  Sender: FDA-Public Use
  Company Number: US-NAPPMUNDI-USA-2011-0069919

PATIENT
  Sex: Female
  Weight: 76.19 kg

DRUGS (1)
  1. BUTRANS [Suspect]
     Indication: PAIN
     Dosage: 20 MCG/HR, DAILY
     Dates: start: 20110518, end: 20110525

REACTIONS (4)
  - APPLICATION SITE PAIN [None]
  - APPLICATION SITE EXFOLIATION [None]
  - APPLICATION SITE DERMATITIS [None]
  - APPLICATION SITE SCAR [None]
